FAERS Safety Report 19176121 (Version 1)
Quarter: 2021Q2

REPORT INFORMATION
  Report Type: Report from Study
  Country: US (occurrence: US)
  Receive Date: 20210423
  Receipt Date: 20210423
  Transmission Date: 20210717
  Serious: Yes (Hospitalization, Other)
  Sender: FDA-Public Use
  Company Number: US-TAKEDA-US202000124

PATIENT
  Age: 69 Year
  Sex: Female

DRUGS (1)
  1. HUMAN IMMUNOGLOBULIN; HYALURONIDASE [Suspect]
     Active Substance: HUMAN IMMUNOGLOBULIN G\HYALURONIDASE RECOMBINANT HUMAN
     Indication: IMMUNODEFICIENCY COMMON VARIABLE
     Dosage: 60 GRAM
     Route: 065

REACTIONS (6)
  - Fall [Unknown]
  - Parathyroidectomy [Unknown]
  - Pulmonary hypertension [Unknown]
  - Post procedural complication [Unknown]
  - Thyroidectomy [Unknown]
  - Head injury [Unknown]

NARRATIVE: CASE EVENT DATE: 202102
